FAERS Safety Report 18135497 (Version 1)
Quarter: 2020Q3

REPORT INFORMATION
  Report Type: Spontaneous
  Country: US (occurrence: US)
  Receive Date: 20200811
  Receipt Date: 20200811
  Transmission Date: 20201103
  Serious: No
  Sender: FDA-Public Use
  Company Number: None

PATIENT
  Age: 52 Year
  Sex: Male
  Weight: 111.6 kg

DRUGS (3)
  1. EUA REMDESIVIR [Suspect]
     Active Substance: REMDESIVIR
     Indication: COVID-19
     Route: 042
     Dates: start: 20200705, end: 20200714
  2. ECULIZUMAB [Concomitant]
     Active Substance: ECULIZUMAB
     Dates: start: 20200708, end: 20200708
  3. DECADRON [Concomitant]
     Active Substance: DEXAMETHASONE
     Dates: start: 20200705, end: 20200714

REACTIONS (3)
  - Infusion site extravasation [None]
  - Paravenous drug administration [None]
  - Infusion site swelling [None]

NARRATIVE: CASE EVENT DATE: 20200709
